FAERS Safety Report 10228597 (Version 1)
Quarter: 2014Q2

REPORT INFORMATION
  Report Type: Spontaneous
  Country: US (occurrence: US)
  Receive Date: 20140610
  Receipt Date: 20140610
  Transmission Date: 20141212
  Serious: Yes (Other)
  Sender: FDA-Public Use
  Company Number: US-BAYER-2014-084838

PATIENT
  Sex: Female

DRUGS (3)
  1. YAZ [Suspect]
     Dosage: UNK
     Dates: start: 2008, end: 2010
  2. YASMIN [Suspect]
     Dosage: UNK
     Dates: start: 2008, end: 2010
  3. OCELLA [Suspect]
     Dosage: UNK
     Dates: start: 2008, end: 2010

REACTIONS (9)
  - Intracranial venous sinus thrombosis [None]
  - Thrombosis [None]
  - Emotional distress [None]
  - Pain [None]
  - Abdominal pain [None]
  - Injury [None]
  - Anxiety [None]
  - General physical health deterioration [None]
  - Pain [None]
